FAERS Safety Report 12220690 (Version 6)
Quarter: 2018Q2

REPORT INFORMATION
  Report Type: Spontaneous
  Country: CA (occurrence: CA)
  Receive Date: 20160330
  Receipt Date: 20180620
  Transmission Date: 20180711
  Serious: Yes (Hospitalization, Other)
  Sender: FDA-Public Use
  Company Number: CA-APOTEX-2016AP007360

PATIENT
  Age: 58 Year
  Sex: Female

DRUGS (41)
  1. APO-VALPROIC [Suspect]
     Active Substance: VALPROIC ACID
     Indication: STATUS EPILEPTICUS
     Dosage: UNK, UNKNOWN
     Route: 065
  2. APO-LEVETIRACETAM [Suspect]
     Active Substance: LEVETIRACETAM
     Indication: OFF LABEL USE
  3. PHENYTOIN. [Suspect]
     Active Substance: PHENYTOIN
     Indication: SEIZURE
  4. PROPOFOL. [Suspect]
     Active Substance: PROPOFOL
     Indication: ELECTROENCEPHALOGRAM ABNORMAL
  5. VALPROIC ACID. [Concomitant]
     Active Substance: VALPROIC ACID
     Indication: STATUS EPILEPTICUS
     Route: 065
  6. APO-MIDAZOLAM INJECTABLE (APOTEX STD) [Suspect]
     Active Substance: MIDAZOLAM HYDROCHLORIDE
     Indication: SEIZURE
  7. APO-MIDAZOLAM INJECTABLE (APOTEX STD) [Suspect]
     Active Substance: MIDAZOLAM HYDROCHLORIDE
     Indication: STATUS EPILEPTICUS
  8. PROPOFOL. [Suspect]
     Active Substance: PROPOFOL
     Indication: STATUS EPILEPTICUS
     Dosage: UNK, UNKNOWN
     Route: 065
  9. PROPOFOL. [Suspect]
     Active Substance: PROPOFOL
     Indication: MAINTENANCE OF ANAESTHESIA
  10. FORANE [Suspect]
     Active Substance: ISOFLURANE
     Indication: OFF LABEL USE
  11. PHENYTOIN. [Suspect]
     Active Substance: PHENYTOIN
     Indication: STATUS EPILEPTICUS
  12. KETAMINE HCL [Suspect]
     Active Substance: KETAMINE HYDROCHLORIDE
     Indication: MAINTENANCE OF ANAESTHESIA
  13. MIDAZOLAM [Concomitant]
     Active Substance: MIDAZOLAM HYDROCHLORIDE
     Indication: STATUS EPILEPTICUS
     Route: 065
  14. PROPOFOL. [Suspect]
     Active Substance: PROPOFOL
     Indication: SEIZURE
  15. PROPOFOL. [Suspect]
     Active Substance: PROPOFOL
     Indication: STATUS EPILEPTICUS
  16. KETAMINE HCL [Suspect]
     Active Substance: KETAMINE HYDROCHLORIDE
     Indication: STATUS EPILEPTICUS
  17. FORANE [Suspect]
     Active Substance: ISOFLURANE
     Indication: SEIZURE
  18. ISOFLURANE. [Suspect]
     Active Substance: ISOFLURANE
     Indication: STATUS EPILEPTICUS
  19. METHYLPREDNISOLONE W/SUCCINATE SODIUM [Suspect]
     Active Substance: METHYLPREDNISOLONE SODIUM SUCCINATE
     Indication: PRODUCT USED FOR UNKNOWN INDICATION
     Dosage: 4 G, UNK
     Route: 042
  20. PIPERACILLINTAZOBACTAM ORPHA [Concomitant]
     Indication: APPENDICITIS
     Route: 065
  21. APO-MIDAZOLAM INJECTABLE (APOTEX STD) [Suspect]
     Active Substance: MIDAZOLAM HYDROCHLORIDE
     Indication: STATUS EPILEPTICUS
     Dosage: UNK, UNKNOWN
     Route: 030
  22. FORANE [Suspect]
     Active Substance: ISOFLURANE
     Indication: STATUS EPILEPTICUS
     Dosage: UNK, UNKNOWN
     Route: 065
  23. APO-MIDAZOLAM INJECTABLE (APOTEX STD) [Suspect]
     Active Substance: MIDAZOLAM HYDROCHLORIDE
     Indication: ELECTROENCEPHALOGRAM ABNORMAL
  24. APO-LEVETIRACETAM [Suspect]
     Active Substance: LEVETIRACETAM
     Indication: MAINTENANCE OF ANAESTHESIA
  25. APO-LEVETIRACETAM [Suspect]
     Active Substance: LEVETIRACETAM
     Indication: SEIZURE
  26. PHENYTOIN. [Suspect]
     Active Substance: PHENYTOIN
     Indication: MAINTENANCE OF ANAESTHESIA
  27. ISOFLURANE. [Suspect]
     Active Substance: ISOFLURANE
     Indication: SEIZURE
     Route: 065
  28. PHENOBARBITAL. [Suspect]
     Active Substance: PHENOBARBITAL
     Indication: STATUS EPILEPTICUS
     Dosage: 150 MG, Q.12H
     Route: 065
  29. PHENOBARBITAL. [Suspect]
     Active Substance: PHENOBARBITAL
     Indication: MAINTENANCE OF ANAESTHESIA
     Dosage: 150 MG, BID
     Route: 065
  30. METHYLPREDNISOLONE. [Concomitant]
     Active Substance: METHYLPREDNISOLONE
     Indication: STATUS EPILEPTICUS
  31. APO-VALPROIC [Suspect]
     Active Substance: VALPROIC ACID
     Indication: MAINTENANCE OF ANAESTHESIA
  32. FORANE [Suspect]
     Active Substance: ISOFLURANE
     Indication: MAINTENANCE OF ANAESTHESIA
  33. PHENOBARBITAL. [Suspect]
     Active Substance: PHENOBARBITAL
     Indication: SEIZURE
  34. METHYLPREDNISOLONE. [Concomitant]
     Active Substance: METHYLPREDNISOLONE
     Indication: STATUS EPILEPTICUS
     Dosage: 4 G, TOTAL
     Route: 042
  35. APO-VALPROIC [Suspect]
     Active Substance: VALPROIC ACID
     Indication: SEIZURE
  36. APO-LEVETIRACETAM [Suspect]
     Active Substance: LEVETIRACETAM
     Indication: STATUS EPILEPTICUS
     Dosage: UNK, UNKNOWN
     Route: 065
  37. APO-LEVETIRACETAM [Suspect]
     Active Substance: LEVETIRACETAM
     Indication: STATUS EPILEPTICUS
  38. PHENYTOIN. [Suspect]
     Active Substance: PHENYTOIN
     Indication: STATUS EPILEPTICUS
     Dosage: UNK UNK, UNKNOWN
     Route: 065
  39. KETAMINE HCL [Suspect]
     Active Substance: KETAMINE HYDROCHLORIDE
     Indication: STATUS EPILEPTICUS
     Dosage: UNK, UNKNOWN
     Route: 030
  40. KETAMINE HCL [Suspect]
     Active Substance: KETAMINE HYDROCHLORIDE
     Indication: SEIZURE
  41. PHENOBARBITAL. [Suspect]
     Active Substance: PHENOBARBITAL
     Indication: STATUS EPILEPTICUS

REACTIONS (18)
  - Systemic inflammatory response syndrome [Unknown]
  - Abscess [Unknown]
  - Necrosis ischaemic [Unknown]
  - Procedural intestinal perforation [Unknown]
  - Left ventricular hypertrophy [Unknown]
  - Abdominal distension [Unknown]
  - Intra-abdominal pressure increased [Unknown]
  - Perforation [Unknown]
  - Carbohydrate antigen 125 increased [Unknown]
  - Cardiomegaly [Unknown]
  - Vomiting [Unknown]
  - Drug ineffective [Unknown]
  - Ultrasound ovary abnormal [Unknown]
  - Intestinal ischaemia [Unknown]
  - Pneumatosis [Unknown]
  - Drug ineffective for unapproved indication [Unknown]
  - Off label use [Unknown]
  - Hypotension [Unknown]
